FAERS Safety Report 5906510-X (Version None)
Quarter: 2008Q4

REPORT INFORMATION
  Report Type: 
  Country: None (occurrence: None)
  Receive Date: 20081002
  Receipt Date: 20080919
  Transmission Date: 20090506
  Serious: No
  Sender: FDA-Public Use
  Company Number: US-B.I. PHARMACEUTICALS,INC./RIDGEFIELD-2008-BP-14032BP

PATIENT
  Sex: Male

DRUGS (4)
  1. FLOMAX [Suspect]
     Indication: PROSTATOMEGALY
     Dosage: .4MG
  2. PROSCAR [Suspect]
  3. TRICOR [Concomitant]
  4. ASSORTED VITAMINS [Concomitant]

REACTIONS (2)
  - MIDDLE INSOMNIA [None]
  - URINE FLOW DECREASED [None]
